FAERS Safety Report 5333388-8 (Version None)
Quarter: 2007Q2

REPORT INFORMATION
  Report Type: 
  Country: None (occurrence: None)
  Receive Date: 20070306
  Receipt Date: 20060116
  Transmission Date: 20071010
  Serious: Yes (Other)
  Sender: FDA-Public Use
  Company Number: A03200600297

PATIENT
  Age: 57 Year
  Sex: Male

DRUGS (6)
  1. PLAVIX [Suspect]
     Indication: MYOCARDIAL INFARCTION
     Dosage: 75 MG QD - ORAL
     Route: 048
     Dates: start: 20051022
  2. PLAVIX [Suspect]
     Indication: STENT RELATED INFECTION
     Dosage: 75 MG QD - ORAL
     Route: 048
     Dates: start: 20051022
  3. FIBRE, DIETARY - UNKNOWN - UNIT DOSE : UNKNOWN [Suspect]
     Dosage: ORAL
     Route: 048
  4. RANITIDINE HYDROCHLORIDE [Concomitant]
  5. ASA + CALCIUM CARBONATE + ALUMINUM-MAGNESIA [Concomitant]
  6. LISINOPRIL [Concomitant]

REACTIONS (3)
  - FOOD INTERACTION [None]
  - NECK PAIN [None]
  - STENT OCCLUSION [None]
